FAERS Safety Report 7993887-7 (Version None)
Quarter: 2011Q4

REPORT INFORMATION
  Report Type: 
  Country: None (occurrence: None)
  Receive Date: 20111220
  Receipt Date: 20111214
  Transmission Date: 20120403
  Serious: Yes (Hospitalization)
  Sender: FDA-Public Use
  Company Number: FR-SP-E2011-08121

PATIENT
  Sex: Male

DRUGS (3)
  1. TUBERSOL [Suspect]
     Indication: TUBERCULIN TEST
     Route: 023
     Dates: start: 20111010, end: 20111010
  2. ACETAMINOPHEN [Concomitant]
     Dates: start: 20111018, end: 20111025
  3. BOOSTRIXTETRA (DIPHTHERIA, TETANUS, IPV, PERTUSSIS) [Suspect]
     Route: 030
     Dates: start: 20111010, end: 20111010

REACTIONS (5)
  - LIVER TRANSPLANT [None]
  - ARTHRALGIA [None]
  - FATIGUE [None]
  - HEPATITIS ACUTE [None]
  - HEPATIC FAILURE [None]
